FAERS Safety Report 4546974-X (Version None)
Quarter: 2005Q1

REPORT INFORMATION
  Report Type: 
  Country: None (occurrence: None)
  Receive Date: 20050105
  Receipt Date: 20041223
  Transmission Date: 20050727
  Serious: Yes (Hospitalization)
  Sender: FDA-Public Use
  Company Number: HQWYE174423DEC04

PATIENT
  Age: 72 Year
  Sex: Female

DRUGS (3)
  1. CORDARONE [Suspect]
     Dosage: 450 MG 1X PER 1 DAY
     Route: 042
     Dates: start: 20040101, end: 20040101
  2. EPINEPHRINE [Concomitant]
  3. TRANDATE [Concomitant]

REACTIONS (1)
  - PNEUMONITIS [None]
